FAERS Safety Report 21243465 (Version 1)
Quarter: 2022Q3

REPORT INFORMATION
  Report Type: Spontaneous
  Country: US (occurrence: None)
  Receive Date: 20220822
  Receipt Date: 20220822
  Transmission Date: 20221027
  Serious: Yes (Hospitalization, Other)
  Sender: FDA-Public Use
  Company Number: None

PATIENT
  Age: 63 Year
  Sex: Female
  Weight: 86 kg

DRUGS (13)
  1. VALACYCLOVIR HYDROCHLORIDE [Suspect]
     Active Substance: VALACYCLOVIR HYDROCHLORIDE
     Indication: Oral herpes
     Dosage: OTHER QUANTITY : 1 TABLET(S);?FREQUENCY : TWICE A DAY;?
     Route: 048
     Dates: start: 20220816, end: 20220817
  2. RESTASIS [Concomitant]
     Active Substance: CYCLOSPORINE
  3. LORATADINE [Concomitant]
     Active Substance: LORATADINE
  4. ONE-A-DAY MULTI-VITAMIN [Concomitant]
  5. HERBALS\TURMERIC [Concomitant]
     Active Substance: HERBALS\TURMERIC
  6. ALEVE [Concomitant]
     Active Substance: NAPROXEN SODIUM
  7. YOUTHEORY COLLAGEN [Concomitant]
  8. BIOTIN [Concomitant]
  9. LIFE EXTENSION [Concomitant]
  10. OMEGA 3 [Concomitant]
  11. LOW DOSE ASPIRIN [Concomitant]
     Active Substance: ASPIRIN
  12. VITAMIN D3 [Concomitant]
     Active Substance: CHOLECALCIFEROL
  13. NOW NIACINAMIDE [Concomitant]

REACTIONS (1)
  - Appendicitis [None]

NARRATIVE: CASE EVENT DATE: 20220817
